FAERS Safety Report 18955681 (Version 1)
Quarter: 2021Q1

REPORT INFORMATION
  Report Type: Spontaneous
  Country: DE (occurrence: DE)
  Receive Date: 20210301
  Receipt Date: 20210301
  Transmission Date: 20210420
  Serious: Yes (Other)
  Sender: FDA-Public Use
  Company Number: DE-PFIZER INC-2021172176

PATIENT
  Age: 71 Year
  Sex: Female

DRUGS (2)
  1. BENDAMUSTINE [Suspect]
     Active Substance: BENDAMUSTINE
     Indication: CHRONIC LYMPHOCYTIC LEUKAEMIA
     Dates: start: 202010
  2. RITUXIMAB. [Suspect]
     Active Substance: RITUXIMAB
     Indication: CHRONIC LYMPHOCYTIC LEUKAEMIA
     Dates: start: 202011

REACTIONS (4)
  - Guillain-Barre syndrome [Unknown]
  - Pleocytosis [Unknown]
  - CSF protein increased [Unknown]
  - Ataxia [Unknown]

NARRATIVE: CASE EVENT DATE: 202012
